FAERS Safety Report 5137164-0 (Version None)
Quarter: 2006Q4

REPORT INFORMATION
  Report Type: 
  Country: None (occurrence: None)
  Receive Date: 20061030
  Receipt Date: 20050906
  Transmission Date: 20070319
  Serious: No
  Sender: FDA-Public Use
  Company Number: US-GLAXOSMITHKLINE-A0573109A

PATIENT
  Age: 63 Year
  Sex: Female

DRUGS (6)
  1. ADVAIR HFA [Suspect]
     Indication: ASTHMA
     Dosage: 1PUFF TWICE PER DAY
     Route: 055
     Dates: start: 20030101
  2. BENAZEPRIL HYDROCHLORIDE [Concomitant]
     Route: 065
  3. SINGULAIR [Concomitant]
  4. FLONASE [Concomitant]
  5. LIPITOR [Concomitant]
  6. DYAZIDE [Concomitant]
     Route: 065

REACTIONS (4)
  - CANDIDIASIS [None]
  - COUGH [None]
  - DRUG INEFFECTIVE [None]
  - PHARMACEUTICAL PRODUCT COMPLAINT [None]
